FAERS Safety Report 25440376 (Version 2)
Quarter: 2025Q2

REPORT INFORMATION
  Report Type: Spontaneous
  Country: JP (occurrence: JP)
  Receive Date: 20250616
  Receipt Date: 20250620
  Transmission Date: 20250717
  Serious: Yes (Other)
  Sender: UCB
  Company Number: JP-UCBJ-CD202507692UCBPHAPROD

PATIENT
  Age: 6 Decade
  Sex: Female
  Weight: 90 kg

DRUGS (7)
  1. LEVETIRACETAM [Suspect]
     Active Substance: LEVETIRACETAM
     Indication: Product used for unknown indication
     Route: 048
  2. LEVETIRACETAM [Suspect]
     Active Substance: LEVETIRACETAM
     Route: 048
  3. LEVETIRACETAM [Suspect]
     Active Substance: LEVETIRACETAM
     Route: 048
  4. LEVETIRACETAM [Suspect]
     Active Substance: LEVETIRACETAM
     Route: 048
  5. ZONISAMIDE [Concomitant]
     Active Substance: ZONISAMIDE
     Indication: Product used for unknown indication
  6. ZONISAMIDE [Concomitant]
     Active Substance: ZONISAMIDE
     Dosage: 400 MILLIGRAM, ONCE DAILY (QD)
  7. ZONISAMIDE [Concomitant]
     Active Substance: ZONISAMIDE
     Dosage: 250 MILLIGRAM, ONCE DAILY (QD)

REACTIONS (2)
  - Epilepsy [Recovered/Resolved]
  - Salivary hypersecretion [Unknown]
